FAERS Safety Report 16692364 (Version 1)
Quarter: 2019Q3

REPORT INFORMATION
  Report Type: Spontaneous
  Country: US (occurrence: US)
  Receive Date: 20190812
  Receipt Date: 20190812
  Transmission Date: 20191004
  Serious: No
  Sender: FDA-Public Use
  Company Number: US-PFIZER INC-2019337123

PATIENT
  Age: 74 Year
  Sex: Female

DRUGS (1)
  1. PREMARIN [Suspect]
     Active Substance: ESTROGENS, CONJUGATED
     Dosage: UNK (2 WEEKS EVERY DAY AND THEN USE IT AFTER THAT MONDAY, WEDNESDAY AND FRIDAY)

REACTIONS (4)
  - Application site irritation [Unknown]
  - Product use issue [Unknown]
  - Off label use [Unknown]
  - Incorrect route of product administration [Unknown]
